FAERS Safety Report 10008952 (Version 1)
Quarter: 2014Q1

REPORT INFORMATION
  Report Type: Spontaneous
  Country: US (occurrence: US)
  Receive Date: 20140313
  Receipt Date: 20140313
  Transmission Date: 20141002
  Serious: No
  Sender: FDA-Public Use
  Company Number: US-INCYTE CORPORATION-2012IN000953

PATIENT
  Age: 74 Year
  Sex: Female

DRUGS (7)
  1. JAKAFI [Suspect]
     Indication: MYELOFIBROSIS
     Dosage: 15 MG, BID
     Route: 048
     Dates: start: 201205
  2. SYNTHROID [Concomitant]
  3. COLCHICINE [Concomitant]
  4. ZOCOR [Concomitant]
  5. NIASPAN [Concomitant]
  6. LUNESTA [Concomitant]
  7. CYMBALTA [Concomitant]

REACTIONS (1)
  - Insomnia [Unknown]
